FAERS Safety Report 24926825 (Version 1)
Quarter: 2025Q1

REPORT INFORMATION
  Report Type: Report from Study
  Country: US (occurrence: US)
  Receive Date: 20250205
  Receipt Date: 20250205
  Transmission Date: 20250408
  Serious: Yes (Other)
  Sender: BIOGEN
  Company Number: US-BIOGEN-2025BI01299193

PATIENT
  Age: 73 Year
  Sex: Male

DRUGS (1)
  1. VUMERITY [Suspect]
     Active Substance: DIROXIMEL FUMARATE
     Indication: Multiple sclerosis
     Route: 050
     Dates: start: 20220919, end: 202410

REACTIONS (2)
  - Plasma cell myeloma [Not Recovered/Not Resolved]
  - Multiple sclerosis [Not Recovered/Not Resolved]

NARRATIVE: CASE EVENT DATE: 20230101
